FAERS Safety Report 20715605 (Version 2)
Quarter: 2022Q2

REPORT INFORMATION
  Report Type: Spontaneous
  Country: US (occurrence: US)
  Receive Date: 20220415
  Receipt Date: 20220504
  Transmission Date: 20220721
  Serious: Yes (Other)
  Sender: FDA-Public Use
  Company Number: US-PFIZER INC-2020219922

PATIENT
  Age: 69 Year
  Sex: Female
  Weight: 77.11 kg

DRUGS (2)
  1. TOVIAZ [Suspect]
     Active Substance: FESOTERODINE FUMARATE
     Indication: Neurogenic bladder
     Dosage: 4 MG, 1X/DAY (4 MG NIGHTLY)
     Route: 048
  2. TOVIAZ [Suspect]
     Active Substance: FESOTERODINE FUMARATE
     Indication: Post-traumatic stress disorder

REACTIONS (10)
  - Rheumatoid arthritis [Unknown]
  - Diabetes mellitus [Unknown]
  - Drug ineffective [Unknown]
  - Dry mouth [Unknown]
  - Vision blurred [Unknown]
  - Dry eye [Unknown]
  - Dysphagia [Unknown]
  - Dry throat [Unknown]
  - Osteoarthritis [Unknown]
  - Gout [Unknown]
